FAERS Safety Report 17224576 (Version 3)
Quarter: 2020Q1

REPORT INFORMATION
  Report Type: Report from Study
  Country: JP (occurrence: JP)
  Receive Date: 20200102
  Receipt Date: 20200116
  Transmission Date: 20200409
  Serious: Yes (Other)
  Sender: FDA-Public Use
  Company Number: JP-ASTELLAS-2019JP000839

PATIENT
  Age: 44 Year
  Sex: Female

DRUGS (31)
  1. ASP2215 [Suspect]
     Active Substance: GILTERITINIB
     Route: 048
     Dates: start: 20170301
  2. MUCOSTA [Concomitant]
     Active Substance: REBAMIPIDE
     Dosage: UNK UNK, UNKNOWN FREQ.
     Route: 031
     Dates: start: 20181226, end: 20190110
  3. ALFAROL [Concomitant]
     Active Substance: ALFACALCIDOL
     Indication: OSTEOPOROSIS PROPHYLAXIS
     Dosage: 1 ?G/DAY, UNKNOWN FREQ.
     Route: 048
     Dates: start: 20160921
  4. SODIUM CHLORIDE. [Concomitant]
     Active Substance: SODIUM CHLORIDE
     Indication: MACULAR FIBROSIS
     Dosage: AS NEEDED, UNKNOWN FREQ.
     Route: 031
     Dates: start: 20180701
  5. DAIPHEN [Concomitant]
     Active Substance: SULFAMETHOXAZOLE\TRIMETHOPRIM
     Indication: INFECTION PROPHYLAXIS
     Dosage: 2 DF/DAY, UNKNOWN FREQ.
     Route: 048
     Dates: start: 20150925
  6. MUCOSTA [Concomitant]
     Active Substance: REBAMIPIDE
     Indication: CHRONIC GRAFT VERSUS HOST DISEASE
     Dosage: AS NEEDED, UNKNOWN FREQ.
     Route: 031
     Dates: start: 20171010
  7. PREDONINE [Concomitant]
     Active Substance: PREDNISOLONE
     Indication: CHRONIC GRAFT VERSUS HOST DISEASE
  8. XALATAN [Concomitant]
     Active Substance: LATANOPROST
     Indication: MACULAR FIBROSIS
     Dosage: UNK UNK, UNKNOWN FREQ.
     Route: 031
     Dates: start: 20170330
  9. VEGAMOX [Concomitant]
     Active Substance: MOXIFLOXACIN HYDROCHLORIDE
     Indication: MACULAR FIBROSIS
     Dosage: AS NEEDED, UNKNOWN FREQ.
     Route: 031
     Dates: start: 20180323
  10. PATANOL [Concomitant]
     Active Substance: OLOPATADINE HYDROCHLORIDE
     Indication: MACULAR FIBROSIS
     Dosage: UNK UNK, UNKNOWN FREQ., AS APPROPRIATE
     Route: 031
     Dates: start: 20180323
  11. FLUMETHOLON [Concomitant]
     Active Substance: FLUOROMETHOLONE
     Indication: CHRONIC GRAFT VERSUS HOST DISEASE
     Dosage: AS NEEDED, UNKNOWN FREQ.
     Route: 031
     Dates: start: 20180323, end: 20180628
  12. MUCOSTA [Concomitant]
     Active Substance: REBAMIPIDE
     Indication: MACULAR FIBROSIS
     Dosage: UNK UNK, UNKNOWN FREQ.
     Route: 031
     Dates: start: 20160915, end: 20170117
  13. TRUSOPT [Concomitant]
     Active Substance: DORZOLAMIDE HYDROCHLORIDE
     Indication: MACULAR FIBROSIS
     Dosage: AS NEEDED, UNKNOWN FREQ.
     Route: 031
     Dates: start: 20170105
  14. URSODEOXYCHOLIC ACID [Concomitant]
     Active Substance: URSODIOL
     Indication: HEPATIC FUNCTION ABNORMAL
     Dosage: UNK UNK, UNKNOWN FREQ.
     Route: 048
     Dates: start: 20190326, end: 20190910
  15. ASP2215 [Suspect]
     Active Substance: GILTERITINIB
     Indication: ACUTE MYELOID LEUKAEMIA
     Route: 048
     Dates: start: 20170131, end: 20170222
  16. EFFEXOR [Concomitant]
     Active Substance: VENLAFAXINE HYDROCHLORIDE
     Indication: ANXIETY
     Dosage: 75 MG/DAY, UNKNOWN FREQ.
     Route: 048
     Dates: start: 20180301
  17. TARIVID DAIICHI [Concomitant]
     Indication: MACULAR FIBROSIS
     Dosage: UNK UNK, UNKNOWN FREQ.
     Route: 031
     Dates: start: 20190107, end: 20190110
  18. URSODEOXYCHOLIC ACID [Concomitant]
     Active Substance: URSODIOL
     Indication: LIVER DISORDER
  19. PROGRAF [Concomitant]
     Active Substance: TACROLIMUS
     Indication: CHRONIC GRAFT VERSUS HOST DISEASE
     Dosage: UNK UNK, UNKNOWN FREQ.
     Route: 048
     Dates: start: 20160530
  20. HYALEIN [Concomitant]
     Active Substance: HYALURONATE SODIUM
     Indication: KERATITIS
     Dosage: AS NEEDED, UNKNOWN FREQ.
     Route: 031
     Dates: start: 20171107
  21. TARIVID DAIICHI [Concomitant]
     Indication: CHRONIC GRAFT VERSUS HOST DISEASE
     Dosage: AS NEEDED, UNKNOWN FREQ.
     Route: 031
     Dates: start: 20190618
  22. UREA. [Concomitant]
     Active Substance: UREA
     Indication: CHRONIC GRAFT VERSUS HOST DISEASE
     Dosage: AS NEEDED, UNKNOWN FREQ.
     Route: 061
     Dates: start: 20190426
  23. TALION [BEPOTASTINE BESILATE] [Suspect]
     Active Substance: BEPOTASTINE BESYLATE
     Indication: ARTHROPOD BITE
     Dosage: UNK UNK, UNKNOWN FREQ.
     Route: 048
     Dates: start: 20190314, end: 20190326
  24. TAKEPRON [Concomitant]
     Active Substance: LANSOPRAZOLE
     Indication: GASTRITIS PROPHYLAXIS
     Dosage: 15 MG/DAY, UNKNOWN FREQ.
     Route: 048
     Dates: start: 20150921
  25. FLUMETHOLON [Concomitant]
     Active Substance: FLUOROMETHOLONE
     Dosage: UNK UNK, AS NEEDED
     Route: 047
     Dates: start: 20190704
  26. GATIFLO [Concomitant]
     Active Substance: GATIFLOXACIN
     Indication: MACULAR FIBROSIS
     Dosage: UNK UNK, UNKNOWN FREQ.
     Route: 031
     Dates: start: 20170118, end: 20170530
  27. MAGMITT [Concomitant]
     Active Substance: MAGNESIUM OXIDE
     Indication: CONSTIPATION PROPHYLAXIS
     Dosage: 1980 MG/DAY, UNKNOWN FREQ.
     Route: 048
     Dates: start: 20160413
  28. FLUMETHOLON [Concomitant]
     Active Substance: FLUOROMETHOLONE
     Indication: MACULAR FIBROSIS
     Dosage: UNK UNK, UNKNOWN FREQ.
     Route: 031
     Dates: start: 20160613, end: 20170330
  29. GATIFLO [Concomitant]
     Active Substance: GATIFLOXACIN
     Indication: CHRONIC GRAFT VERSUS HOST DISEASE
     Dosage: UNK UNK, AS NEEDED
     Route: 047
     Dates: start: 20190704
  30. PREDONINE [Concomitant]
     Active Substance: PREDNISOLONE
     Indication: LIVER DISORDER
     Dosage: UNK UNK, UNKNOWN FREQ.
     Route: 048
     Dates: start: 20170301
  31. ANTEBATE [Concomitant]
     Active Substance: BETAMETHASONE DIPROPIONATE
     Indication: ARTHROPOD BITE
     Dosage: AS NEEDED, UNKNOWN FREQ.
     Route: 061
     Dates: start: 20190108, end: 20190402

REACTIONS (5)
  - Chronic graft versus host disease [Not Recovered/Not Resolved]
  - Hepatic function abnormal [Recovered/Resolved]
  - Nasopharyngitis [Recovered/Resolved]
  - Arthropod bite [Recovered/Resolved]
  - Insomnia [Not Recovered/Not Resolved]

NARRATIVE: CASE EVENT DATE: 20181210
